FAERS Safety Report 22593049 (Version 1)
Quarter: 2023Q2

REPORT INFORMATION
  Report Type: Spontaneous
  Country: DK (occurrence: DK)
  Receive Date: 20230613
  Receipt Date: 20230613
  Transmission Date: 20230721
  Serious: Yes (Life-Threatening, Hospitalization)
  Sender: FDA-Public Use
  Company Number: None

PATIENT
  Age: 70 Year
  Sex: Female

DRUGS (1)
  1. ENALAPRIL [Suspect]
     Active Substance: ENALAPRIL
     Indication: Hypertension
     Dosage: 10 MG, QD
     Route: 048
     Dates: start: 20140805, end: 20230527

REACTIONS (4)
  - Haemolytic anaemia [Not Recovered/Not Resolved]
  - Haematemesis [Unknown]
  - Melaena [Unknown]
  - Hypotension [Unknown]

NARRATIVE: CASE EVENT DATE: 20230501
